FAERS Safety Report 6014132-8 (Version None)
Quarter: 2008Q4

REPORT INFORMATION
  Report Type: 
  Country: None (occurrence: None)
  Receive Date: 20081219
  Receipt Date: 20071227
  Transmission Date: 20090506
  Serious: No
  Sender: FDA-Public Use
  Company Number: A0701266A

PATIENT
  Age: 69 Year
  Sex: Male

DRUGS (1)
  1. AVODART [Suspect]
     Indication: DRUG USE FOR UNKNOWN INDICATION
     Route: 065
     Dates: start: 20071001

REACTIONS (3)
  - EJACULATION FAILURE [None]
  - LIBIDO DECREASED [None]
  - SEMEN VOLUME DECREASED [None]
